FAERS Safety Report 5714238-4 (Version None)
Quarter: 2008Q2

REPORT INFORMATION
  Report Type: 
  Country: None (occurrence: None)
  Receive Date: 20080423
  Receipt Date: 20070917
  Transmission Date: 20081010
  Serious: No
  Sender: FDA-Public Use
  Company Number: US-KINGPHARMUSA00001-K200701207

PATIENT

DRUGS (3)
  1. SKELAXIN [Suspect]
     Indication: BACK DISORDER
     Dosage: 800 MG, QD
     Route: 048
  2. NEXIUM [Concomitant]
  3. PREMARIN [Concomitant]

REACTIONS (2)
  - DRUG INEFFECTIVE [None]
  - SOMNOLENCE [None]
